FAERS Safety Report 24092691 (Version 1)
Quarter: 2024Q3

REPORT INFORMATION
  Report Type: Spontaneous
  Country: US (occurrence: US)
  Receive Date: 20240715
  Receipt Date: 20240715
  Transmission Date: 20241017
  Serious: No
  Sender: BIOCON
  Company Number: US-MIMS-BCONMC-4367

PATIENT

DRUGS (1)
  1. FULPHILA [Suspect]
     Active Substance: PEGFILGRASTIM-JMDB
     Indication: Neoplasm malignant
     Dosage: UNK UNK, Q3W (AS DIRECTED)
     Route: 065
     Dates: start: 20240412

REACTIONS (2)
  - Device malfunction [Unknown]
  - Device leakage [Unknown]
